FAERS Safety Report 10262007 (Version 2)
Quarter: 2014Q2

REPORT INFORMATION
  Report Type: Report from Study
  Country: DE (occurrence: DE)
  Receive Date: 20140626
  Receipt Date: 20140626
  Transmission Date: 20141212
  Serious: Yes (Hospitalization)
  Sender: FDA-Public Use
  Company Number: DE-ABBVIE-14P-062-1247172-00

PATIENT
  Sex: Male
  Weight: 9.8 kg

DRUGS (1)
  1. SYNAGIS [Suspect]
     Indication: CARDIAC DISORDER
     Dosage: 110MG UNTIL 150MG DEPENDENT ON BODY WEIGHT
     Route: 030
     Dates: start: 20131001, end: 20140423

REACTIONS (3)
  - Febrile infection [Recovered/Resolved]
  - Respiratory tract infection [Recovered/Resolved]
  - Nasopharyngitis [Unknown]
